FAERS Safety Report 14014420 (Version 3)
Quarter: 2018Q1

REPORT INFORMATION
  Report Type: Report from Study
  Country: US (occurrence: US)
  Receive Date: 20170927
  Receipt Date: 20180120
  Transmission Date: 20180508
  Serious: Yes (Hospitalization)
  Sender: FDA-Public Use
  Company Number: PHEH2017US031007

PATIENT
  Sex: Female

DRUGS (2)
  1. COSENTYX [Suspect]
     Active Substance: SECUKINUMAB
     Dosage: 150 MG, QMO
     Route: 058
  2. COSENTYX [Suspect]
     Active Substance: SECUKINUMAB
     Indication: PSORIATIC ARTHROPATHY
     Dosage: UNK
     Route: 058

REACTIONS (12)
  - Heart rate decreased [Recovering/Resolving]
  - Dizziness [Unknown]
  - Nervousness [Unknown]
  - Drug ineffective [Unknown]
  - Emotional distress [Unknown]
  - Cardiac disorder [Unknown]
  - Psoriatic arthropathy [Unknown]
  - Fear of injection [Unknown]
  - Wrong technique in product usage process [Unknown]
  - Throat tightness [Unknown]
  - Hypersensitivity [Unknown]
  - Nasopharyngitis [Unknown]
